FAERS Safety Report 8315176-3 (Version None)
Quarter: 2012Q2

REPORT INFORMATION
  Report Type: 
  Country: None (occurrence: None)
  Receive Date: 20120426
  Receipt Date: 20120416
  Transmission Date: 20120825
  Serious: Yes (Disabling)
  Sender: FDA-Public Use
  Company Number: JP-GLAXOSMITHKLINE-B0787068A

PATIENT
  Sex: Female
  Weight: 47 kg

DRUGS (7)
  1. PROMACTA [Suspect]
     Indication: IDIOPATHIC THROMBOCYTOPENIC PURPURA
     Dosage: 12.5MG PER DAY
     Route: 048
     Dates: start: 20110627, end: 20110710
  2. PREDNISOLONE [Concomitant]
     Indication: IDIOPATHIC THROMBOCYTOPENIC PURPURA
     Dosage: 10MG PER DAY
     Route: 048
     Dates: start: 20110627, end: 20110703
  3. ROMIPLOSTIM [Suspect]
     Indication: PRODUCT USED FOR UNKNOWN INDICATION
     Route: 058
     Dates: start: 20110728, end: 20110922
  4. PREDNISOLONE [Concomitant]
     Dosage: 7.5MG PER DAY
     Route: 048
     Dates: start: 20110704, end: 20110715
  5. PREDNISOLONE [Concomitant]
     Dosage: 50MG PER DAY
     Route: 048
     Dates: start: 20110715, end: 20110722
  6. PROMACTA [Suspect]
     Dosage: 25MG PER DAY
     Route: 048
     Dates: start: 20110711
  7. PREDNISOLONE [Concomitant]
     Dosage: 40MG PER DAY
     Route: 048
     Dates: start: 20110723

REACTIONS (1)
  - WHITE BLOOD CELL COUNT INCREASED [None]
